FAERS Safety Report 8549202-3 (Version None)
Quarter: 2012Q3

REPORT INFORMATION
  Report Type: 
  Country: None (occurrence: None)
  Receive Date: 20120730
  Receipt Date: 20120720
  Transmission Date: 20120928
  Serious: Yes (Other)
  Sender: FDA-Public Use
  Company Number: US-JNJFOC-20120706976

PATIENT
  Age: 60 Year
  Sex: Female

DRUGS (4)
  1. XARELTO [Suspect]
     Indication: THROMBOSIS PROPHYLAXIS
     Route: 048
     Dates: start: 20120707, end: 20120709
  2. LOVENOX [Suspect]
     Indication: PROPHYLAXIS
     Route: 058
  3. WARFARIN SODIUM [Suspect]
     Indication: PRODUCT USED FOR UNKNOWN INDICATION
     Route: 048
     Dates: start: 20120707
  4. XARELTO [Suspect]
     Indication: JOINT ARTHROPLASTY
     Route: 048
     Dates: start: 20120707, end: 20120709

REACTIONS (4)
  - INTERNATIONAL NORMALISED RATIO ABNORMAL [None]
  - PROTHROMBIN TIME PROLONGED [None]
  - HAEMORRHAGE [None]
  - HAEMOGLOBIN DECREASED [None]
